FAERS Safety Report 18011168 (Version 1)
Quarter: 2020Q3

REPORT INFORMATION
  Report Type: Spontaneous
  Country: IT (occurrence: IT)
  Receive Date: 20200712
  Receipt Date: 20200712
  Transmission Date: 20201103
  Serious: Yes (Other)
  Sender: FDA-Public Use
  Company Number: NVSC2020IT191379

PATIENT
  Age: 69 Year
  Sex: Female
  Weight: 77 kg

DRUGS (13)
  1. FEMARA [Suspect]
     Active Substance: LETROZOLE
     Indication: HER2 POSITIVE BREAST CANCER
     Dosage: 2.5 MG, QD
     Route: 048
     Dates: start: 20180209
  2. EUTIROX [Concomitant]
     Active Substance: LEVOTHYROXINE SODIUM
     Indication: PRODUCT USED FOR UNKNOWN INDICATION
     Route: 065
  3. TAXOTERE [Suspect]
     Active Substance: DOCETAXEL
     Indication: HER2 POSITIVE BREAST CANCER
     Dosage: 75 MG/M2, TIW (MOST RECENT DOSE PRIOR TO THE EVENT: 06/DEC/2017)
     Route: 042
     Dates: start: 20170726
  4. PRITOR PLUS [Concomitant]
     Active Substance: TELMISARTAN
     Indication: PRODUCT USED FOR UNKNOWN INDICATION
     Route: 065
     Dates: start: 20100310
  5. DEPAKIN CHRONO [Concomitant]
     Active Substance: VALPROIC ACID
     Indication: PRODUCT USED FOR UNKNOWN INDICATION
     Route: 065
     Dates: start: 20190128
  6. CHLORPHENAMINE [Concomitant]
     Active Substance: CHLORPHENIRAMINE MALEATE
     Indication: PRODUCT USED FOR UNKNOWN INDICATION
     Route: 065
     Dates: start: 20170726
  7. TRASTUZUMAB. [Suspect]
     Active Substance: TRASTUZUMAB
     Indication: HER2 POSITIVE BREAST CANCER
     Dosage: 600 MG, TIW (MOST RECENT DOSE PRIOR TO THE EVENT: 05/JAN/2018)
     Route: 042
     Dates: start: 20170726
  8. MIRTAZAPINA [Concomitant]
     Active Substance: MIRTAZAPINE
     Indication: MAJOR DEPRESSION
     Route: 065
     Dates: start: 20190409
  9. LOPERAMIDE [Concomitant]
     Active Substance: LOPERAMIDE
     Indication: DIARRHOEA
     Dosage: UNK
     Route: 065
     Dates: start: 20170906
  10. LOPERAMIDE [Concomitant]
     Active Substance: LOPERAMIDE
     Dosage: UNK
     Route: 065
     Dates: start: 20180126
  11. PERTUZUMAB. [Suspect]
     Active Substance: PERTUZUMAB
     Indication: HER2 POSITIVE BREAST CANCER
     Dosage: 840 MG, TIW (MOST RECENT DOSE PRIOR TO THE EVENT: 05/JAN/2018)
     Route: 042
     Dates: start: 20170818
  12. DULOXETINA [Concomitant]
     Active Substance: DULOXETINE
     Indication: MAJOR DEPRESSION
     Route: 065
     Dates: start: 20190110
  13. LORAZEPAM. [Concomitant]
     Active Substance: LORAZEPAM
     Indication: MAJOR DEPRESSION
     Route: 065
     Dates: start: 20190110

REACTIONS (1)
  - Hypokalaemia [Not Recovered/Not Resolved]

NARRATIVE: CASE EVENT DATE: 20200130
